FAERS Safety Report 15495860 (Version 2)
Quarter: 2018Q4

REPORT INFORMATION
  Report Type: Spontaneous
  Country: US (occurrence: US)
  Receive Date: 20181014
  Receipt Date: 20181104
  Transmission Date: 20190205
  Serious: No
  Sender: FDA-Public Use
  Company Number: US-JNJFOC-20180623207

PATIENT
  Age: 59 Year
  Sex: Female
  Weight: 43 kg

DRUGS (12)
  1. IMBRUVICA [Suspect]
     Active Substance: IBRUTINIB
     Indication: DIFFUSE LARGE B-CELL LYMPHOMA
     Route: 048
     Dates: start: 20180605
  2. LOMOTIL [Concomitant]
     Active Substance: ATROPINE SULFATE\DIPHENOXYLATE HYDROCHLORIDE
  3. OXYCODONE [Concomitant]
     Active Substance: OXYCODONE
  4. GABAPENTIN. [Concomitant]
     Active Substance: GABAPENTIN
  5. CLOTRIMAZOLE. [Concomitant]
     Active Substance: CLOTRIMAZOLE
  6. COMPAZINE [Concomitant]
     Active Substance: PROCHLORPERAZINE MALEATE
  7. ZOLOFT [Concomitant]
     Active Substance: SERTRALINE HYDROCHLORIDE
  8. CLONAZEPAM. [Concomitant]
     Active Substance: CLONAZEPAM
  9. ESTRADIOL. [Concomitant]
     Active Substance: ESTRADIOL
  10. COMPAZINE [Concomitant]
     Active Substance: PROCHLORPERAZINE MALEATE
  11. ONDANSETRON [Concomitant]
     Active Substance: ONDANSETRON
  12. XANAX [Concomitant]
     Active Substance: ALPRAZOLAM

REACTIONS (5)
  - Off label use [Unknown]
  - Feeling hot [Unknown]
  - Product use in unapproved indication [Unknown]
  - Fatigue [Unknown]
  - Somnolence [Recovered/Resolved]

NARRATIVE: CASE EVENT DATE: 201806
